FAERS Safety Report 5751009-7 (Version None)
Quarter: 2008Q2

REPORT INFORMATION
  Report Type: 
  Country: None (occurrence: None)
  Receive Date: 20080528
  Receipt Date: 20080523
  Transmission Date: 20081010
  Serious: Yes (Death)
  Sender: FDA-Public Use
  Company Number: JP-BAYER-200810991BYL

PATIENT
  Age: 82 Year
  Sex: Male

DRUGS (3)
  1. AVELOX [Suspect]
     Indication: HAIR DISORDER
     Dosage: UNIT DOSE: 400 MG
     Route: 048
     Dates: start: 20080522, end: 20080522
  2. BLOPRESS [Concomitant]
     Indication: HYPERTENSION
     Dosage: UNIT DOSE: 4 MG
     Route: 048
     Dates: end: 20080522
  3. ARICEPT [Concomitant]
     Dosage: UNIT DOSE: 5 MG
     Route: 048

REACTIONS (1)
  - DEATH [None]
